FAERS Safety Report 13331823 (Version 1)
Quarter: 2017Q1

REPORT INFORMATION
  Report Type: Spontaneous
  Country: US (occurrence: US)
  Receive Date: 20170314
  Receipt Date: 20170314
  Transmission Date: 20170428
  Serious: No
  Sender: FDA-Public Use
  Company Number: US-JNJFOC-20170127488

PATIENT
  Sex: Female
  Weight: 54.43 kg

DRUGS (3)
  1. TYLENOL [Suspect]
     Active Substance: ACETAMINOPHEN
     Route: 065
  2. TYLENOL [Suspect]
     Active Substance: ACETAMINOPHEN
     Indication: VERTIGO
     Route: 065
  3. EMERGEN C [Concomitant]
     Active Substance: MINERALS\VITAMINS
     Indication: INFLUENZA
     Dosage: 1 PACKET A DAY, MIX WITH WATER BY MOUTH EVERY OTHER DAY THIS WEEK
     Route: 065
     Dates: start: 201701, end: 20170119

REACTIONS (1)
  - Product use issue [Unknown]
